FAERS Safety Report 5707069-2 (Version None)
Quarter: 2008Q2

REPORT INFORMATION
  Report Type: 
  Country: None (occurrence: None)
  Receive Date: 20080416
  Receipt Date: 20080409
  Transmission Date: 20081010
  Serious: Yes (Hospitalization)
  Sender: FDA-Public Use
  Company Number: B0516747A

PATIENT
  Age: 91 Year
  Sex: Female
  Weight: 55 kg

DRUGS (3)
  1. ARIXTRA [Suspect]
     Indication: THROMBOSIS PROPHYLAXIS
     Dosage: 2.5MG PER DAY
     Route: 058
     Dates: start: 20080219, end: 20080320
  2. ARIXTRA [Suspect]
     Indication: PHLEBITIS
     Dosage: 7.5MG PER DAY
     Route: 058
     Dates: start: 20080320, end: 20080326
  3. ANTIVITAMINS K [Concomitant]
     Route: 065
     Dates: start: 20080321

REACTIONS (6)
  - DRUG INEFFECTIVE [None]
  - HAEMATOMA [None]
  - HAEMOGLOBIN DECREASED [None]
  - INCISION SITE HAEMORRHAGE [None]
  - PHLEBITIS [None]
  - PYREXIA [None]
